FAERS Safety Report 16921733 (Version 1)
Quarter: 2019Q4

REPORT INFORMATION
  Report Type: Report from Study
  Country: DE (occurrence: DE)
  Receive Date: 20191015
  Receipt Date: 20191015
  Transmission Date: 20200122
  Serious: Yes (Other)
  Sender: FDA-Public Use
  Company Number: PHHY2018DE039372

PATIENT
  Age: 38 Year
  Sex: Female

DRUGS (4)
  1. COSENTYX [Suspect]
     Active Substance: SECUKINUMAB
     Dosage: UNK
     Route: 065
  2. COSENTYX [Suspect]
     Active Substance: SECUKINUMAB
     Dosage: 300 MG, UNK
     Route: 065
     Dates: start: 20170209
  3. COSENTYX [Suspect]
     Active Substance: SECUKINUMAB
     Indication: PSORIASIS
     Dosage: 300 MG, UNK
     Route: 065
     Dates: start: 20170113, end: 20170208
  4. COSENTYX [Suspect]
     Active Substance: SECUKINUMAB
     Dosage: UNK
     Route: 065

REACTIONS (6)
  - Herpes zoster [Recovered/Resolved]
  - Cystitis [Recovered/Resolved]
  - Goitre [Not Recovered/Not Resolved]
  - Angina pectoris [Recovered/Resolved]
  - Cystitis [Recovered/Resolved]
  - Dactylitis [Not Recovered/Not Resolved]

NARRATIVE: CASE EVENT DATE: 20180125
